FAERS Safety Report 12912825 (Version 1)
Quarter: 2016Q4

REPORT INFORMATION
  Report Type: Report from Study
  Country: CA (occurrence: CA)
  Receive Date: 20161104
  Receipt Date: 20161104
  Transmission Date: 20170207
  Serious: Yes (Hospitalization)
  Sender: FDA-Public Use
  Company Number: CA-JNJFOC-20161027305

PATIENT
  Age: 68 Year
  Sex: Female
  Weight: 79 kg

DRUGS (1)
  1. REMICADE [Suspect]
     Active Substance: INFLIXIMAB
     Indication: CROHN^S DISEASE
     Route: 042
     Dates: start: 20150402, end: 20160831

REACTIONS (3)
  - Necrosis [Unknown]
  - Gastrointestinal disorder [Unknown]
  - Peritonitis [Unknown]

NARRATIVE: CASE EVENT DATE: 20161005
